FAERS Safety Report 9855993 (Version 2)
Quarter: 2014Q1

REPORT INFORMATION
  Report Type: Spontaneous
  Country: US (occurrence: US)
  Receive Date: 20140130
  Receipt Date: 20140227
  Transmission Date: 20141002
  Serious: No
  Sender: FDA-Public Use
  Company Number: US-PFIZER INC-2014027131

PATIENT
  Age: 60 Year
  Sex: Male
  Weight: 83.9 kg

DRUGS (8)
  1. LYRICA [Suspect]
     Indication: FIBROMYALGIA
     Dosage: 150 MG, 4X/DAY
     Dates: end: 201401
  2. LYRICA [Suspect]
     Indication: PAIN IN EXTREMITY
  3. LYRICA [Suspect]
     Indication: BACK PAIN
  4. LYRICA [Suspect]
     Indication: NERVE INJURY
  5. HYDROCODONE W/ACETAMINOPHEN [Concomitant]
     Dosage: UNK, 4X/DAY
  6. XANAX [Concomitant]
     Indication: ANXIETY
     Dosage: 1 MG, 4X/DAY
  7. TYLENOL [Concomitant]
     Indication: ARTHRITIS
     Dosage: 650 MG, 4X/DAY
  8. TRAMADOL HYDROCHLORIDE [Concomitant]
     Dosage: 50 MG, UNK

REACTIONS (5)
  - Drug ineffective [Unknown]
  - Pain [Unknown]
  - Emotional distress [Unknown]
  - Hot flush [Unknown]
  - Malaise [Unknown]
